FAERS Safety Report 15389783 (Version 1)
Quarter: 2018Q3

REPORT INFORMATION
  Report Type: Spontaneous
  Country: US (occurrence: US)
  Receive Date: 20180917
  Receipt Date: 20180917
  Transmission Date: 20181010
  Serious: No
  Sender: FDA-Public Use
  Company Number: US-AUROBINDO-AUR-APL-2018-010280

PATIENT
  Age: 80 Year
  Sex: Female

DRUGS (1)
  1. PAROXETINE TABLETS USP 10MG [Suspect]
     Active Substance: PAROXETINE
     Indication: NERVOUSNESS
     Dosage: 01 DOSAGE FORM, TWO TIMES A DAY
     Route: 065
     Dates: start: 201709

REACTIONS (1)
  - Alopecia [Not Recovered/Not Resolved]

NARRATIVE: CASE EVENT DATE: 201710
